FAERS Safety Report 21353994 (Version 2)
Quarter: 2022Q4

REPORT INFORMATION
  Report Type: Report from Study
  Country: KR (occurrence: KR)
  Receive Date: 20220920
  Receipt Date: 20221125
  Transmission Date: 20230113
  Serious: Yes (Hospitalization)
  Sender: FDA-Public Use
  Company Number: KR-BoehringerIngelheim-2022-BI-192741

PATIENT
  Age: 79 Year
  Sex: Female
  Weight: 52 kg

DRUGS (1)
  1. AFATINIB [Suspect]
     Active Substance: AFATINIB
     Indication: Non-small cell lung cancer
     Route: 048
     Dates: start: 20220808, end: 20220812

REACTIONS (3)
  - Asthenia [Recovered/Resolved]
  - Diarrhoea [Recovered/Resolved]
  - Stomatitis [Recovered/Resolved]

NARRATIVE: CASE EVENT DATE: 20220813
